FAERS Safety Report 6922874-2 (Version None)
Quarter: 2010Q3

REPORT INFORMATION
  Report Type: 
  Country: None (occurrence: None)
  Receive Date: 20100811
  Receipt Date: 20100730
  Transmission Date: 20110219
  Serious: Yes (Hospitalization)
  Sender: FDA-Public Use
  Company Number: B0668739A

PATIENT
  Age: 50 Year
  Sex: Male

DRUGS (3)
  1. ALBUTEROL SULATE [Suspect]
     Indication: STATUS ASTHMATICUS
     Dosage: INHALED
  2. NEBULIZER (FORMULATION UNKNOWN) NEBULIZER [Suspect]
     Indication: STATUS ASTHMATICUS
  3. INTUBATION [Concomitant]

REACTIONS (5)
  - CARDIOTOXICITY [None]
  - ELECTROCARDIOGRAM ST SEGMENT ELEVATION [None]
  - INCORRECT DRUG ADMINISTRATION DURATION [None]
  - STRESS CARDIOMYOPATHY [None]
  - VENTRICULAR HYPOKINESIA [None]
